FAERS Safety Report 5464822-0 (Version None)
Quarter: 2007Q3

REPORT INFORMATION
  Report Type: 
  Country: None (occurrence: None)
  Receive Date: 20070820
  Receipt Date: 20070612
  Transmission Date: 20080115
  Serious: No
  Sender: FDA-Public Use
  Company Number: TPA2007A01379

PATIENT
  Age: 78 Year
  Sex: Female
  Weight: 68.0396 kg

DRUGS (10)
  1. ROZEREM [Suspect]
     Dosage: ONCE, PER ORAL
     Route: 048
  2. LUNESTA [Suspect]
     Indication: INSOMNIA
     Dosage: 3 MG, PER ORAL, 2 MG, PER ORAL, 3 MG, PER ORAL, 1.5 MG, 1 IN 2 D, PER ORAL
     Route: 048
     Dates: start: 20060101
  3. LUNESTA [Suspect]
     Indication: INSOMNIA
     Dosage: 3 MG, PER ORAL, 2 MG, PER ORAL, 3 MG, PER ORAL, 1.5 MG, 1 IN 2 D, PER ORAL
     Route: 048
     Dates: start: 20070502
  4. AVAPRO [Concomitant]
  5. TOPROL-XL [Concomitant]
  6. FISH OIL (FISH OIL) [Concomitant]
  7. THYROID THERAPY (THYROID THERAPY) [Concomitant]
  8. CALCIUM (CALCIUM) [Concomitant]
  9. GLUCOSAMINE (GLUCOSAMINE) [Concomitant]
  10. ARTIFICIAL TEARS (ARTIFICIAL TEARS) [Concomitant]

REACTIONS (1)
  - DIZZINESS [None]
